FAERS Safety Report 24053354 (Version 2)
Quarter: 2024Q3

REPORT INFORMATION
  Report Type: Report from Study
  Country: US (occurrence: US)
  Receive Date: 20240705
  Receipt Date: 20240801
  Transmission Date: 20241017
  Serious: Yes (Hospitalization)
  Sender: ABBVIE
  Company Number: US-ABBVIE-5824993

PATIENT
  Age: 64 Year
  Sex: Female

DRUGS (2)
  1. RINVOQ [Suspect]
     Active Substance: UPADACITINIB
     Indication: Psoriatic arthropathy
     Dosage: END DATE- 2024
     Route: 048
     Dates: start: 20230415
  2. RINVOQ [Suspect]
     Active Substance: UPADACITINIB
     Indication: Psoriatic arthropathy
     Route: 048
     Dates: start: 2024

REACTIONS (6)
  - Escherichia sepsis [Recovering/Resolving]
  - Nephrolithiasis [Recovering/Resolving]
  - Nephrolithiasis [Recovering/Resolving]
  - Escherichia urinary tract infection [Recovering/Resolving]
  - Obstructive nephropathy [Unknown]
  - Urinary retention [Unknown]

NARRATIVE: CASE EVENT DATE: 20240617
